FAERS Safety Report 15833023 (Version 3)
Quarter: 2019Q1

REPORT INFORMATION
  Report Type: Report from Study
  Country: GB (occurrence: GB)
  Receive Date: 20190116
  Receipt Date: 20190228
  Transmission Date: 20190417
  Serious: Yes (Hospitalization, Other)
  Sender: FDA-Public Use
  Company Number: GB-JNJFOC-20190114630

PATIENT
  Age: 52 Year
  Sex: Male

DRUGS (1)
  1. STELARA [Suspect]
     Active Substance: USTEKINUMAB
     Indication: PSORIASIS
     Route: 058
     Dates: start: 2014

REACTIONS (7)
  - Physical assault [Unknown]
  - Psoriasis [Unknown]
  - Deafness [Unknown]
  - Tympanic membrane perforation [Unknown]
  - Cerebrovascular accident [Unknown]
  - Pneumonia [Unknown]
  - Aphasia [Unknown]

NARRATIVE: CASE EVENT DATE: 201803
